FAERS Safety Report 5730645-8 (Version None)
Quarter: 2008Q2

REPORT INFORMATION
  Report Type: 
  Country: None (occurrence: None)
  Receive Date: 20080507
  Receipt Date: 20080417
  Transmission Date: 20081010
  Serious: Yes (Other)
  Sender: FDA-Public Use
  Company Number: CA-ASTRAZENECA-2008UW08073

PATIENT
  Age: 71 Year
  Sex: Male

DRUGS (1)
  1. CRESTOR [Suspect]
     Indication: HYPERCHOLESTEROLAEMIA
     Route: 048
     Dates: start: 20070201

REACTIONS (4)
  - EYE PAIN [None]
  - INSOMNIA [None]
  - PAIN IN EXTREMITY [None]
  - VASCULAR GRAFT [None]
